FAERS Safety Report 5310441-6 (Version None)
Quarter: 2007Q2

REPORT INFORMATION
  Report Type: 
  Country: None (occurrence: None)
  Receive Date: 20070427
  Receipt Date: 20061011
  Transmission Date: 20071010
  Serious: Yes (Hospitalization)
  Sender: FDA-Public Use
  Company Number: US-BOEHRINGER INGELHEIM PHARMACEUTICALS, INC.-2006-BP-02483BP

PATIENT
  Sex: Male

DRUGS (48)
  1. MIRAPEX [Suspect]
     Indication: PARKINSON'S DISEASE
     Route: 048
     Dates: start: 19990127, end: 20041125
  2. SINEMET CR [Concomitant]
     Indication: PARKINSON'S DISEASE
     Dates: start: 19990127
  3. SINEMET [Concomitant]
     Indication: PARKINSON'S DISEASE
     Dates: start: 20050201
  4. ELDEPRYL [Concomitant]
     Indication: PARKINSON'S DISEASE
     Dates: start: 20010801
  5. AMANTADINE HCL [Concomitant]
     Indication: PARKINSON'S DISEASE
     Dates: start: 19970101
  6. STALEVO 100 [Concomitant]
     Indication: PARKINSON'S DISEASE
     Dates: start: 20031005
  7. SEROQUEL [Concomitant]
     Indication: ANXIETY
     Dates: start: 20040601
  8. SEROQUEL [Concomitant]
     Indication: INSOMNIA
  9. REQUIP [Concomitant]
     Indication: PARKINSON'S DISEASE
     Dates: start: 20041122
  10. TAZMAR [Concomitant]
     Indication: PARKINSON'S DISEASE
     Dates: start: 19990101
  11. CYMBALTA [Concomitant]
     Indication: DEPRESSION
     Dates: start: 20060117
  12. LEXAPRO [Concomitant]
     Indication: DEPRESSION
     Dates: start: 20050801, end: 20060124
  13. LORTAB [Concomitant]
     Indication: PAIN
     Dates: start: 20041122
  14. LORTAB [Concomitant]
     Indication: BACK PAIN
     Dates: start: 20050301
  15. PAXIL [Concomitant]
     Indication: DEPRESSION
     Dates: start: 20010801
  16. PAXIL [Concomitant]
     Indication: ANXIETY
  17. FLEXERIL [Concomitant]
     Indication: MUSCLE SPASMS
     Dates: start: 20031020
  18. FLEXERIL [Concomitant]
     Dates: start: 20060227
  19. COLACE [Concomitant]
     Indication: CONSTIPATION
     Dates: start: 20031201
  20. PREPARATION H [Concomitant]
     Indication: HAEMORRHOIDS
     Dates: start: 20031201
  21. PROTONIX [Concomitant]
     Dates: start: 20050919, end: 20060301
  22. PRILOSEC [Concomitant]
  23. ALEVE [Concomitant]
     Indication: BACK PAIN
     Dates: start: 20051001
  24. BENTYL [Concomitant]
     Indication: ABDOMINAL PAIN
     Dates: start: 20050808
  25. ACEPHEN [Concomitant]
     Dates: start: 20050808
  26. HYDROCODONE [Concomitant]
     Indication: PAIN
     Dates: start: 20050120
  27. CELEXA [Concomitant]
     Indication: DEPRESSION
     Dates: start: 20050114, end: 20050801
  28. CELEXA [Concomitant]
     Indication: ANXIETY
     Dates: start: 20041111
  29. PHENERGAN HCL [Concomitant]
     Indication: NAUSEA
     Dates: start: 20021227
  30. TRAZODONE HCL [Concomitant]
     Indication: INSOMNIA
     Dates: start: 19971201
  31. TRAZODONE HCL [Concomitant]
     Dates: start: 20011030, end: 20020308
  32. RESTORIL [Concomitant]
     Indication: INSOMNIA
     Dates: start: 20030612, end: 20031001
  33. RESTORIL [Concomitant]
     Dates: start: 20031020
  34. KLONOPIN [Concomitant]
     Dates: start: 20030612
  35. PROVIGIL [Concomitant]
     Indication: SOMNOLENCE
     Dates: start: 20030612
  36. SOMA COMPOUND [Concomitant]
     Indication: PAIN
     Dates: start: 19991124
  37. AMITRIPTYLINE HCL [Concomitant]
     Indication: PARKINSON'S DISEASE
     Dates: start: 20000531
  38. COMTAN [Concomitant]
     Indication: PARKINSON'S DISEASE
     Dates: start: 20000101, end: 20001101
  39. COMTAN [Concomitant]
     Dates: start: 20040401
  40. REMERON [Concomitant]
     Indication: DEPRESSION
     Dates: start: 20010815
  41. LEXAPRO [Concomitant]
     Dates: start: 20050801
  42. TPN [Concomitant]
     Indication: WEIGHT DECREASED
  43. AZILECT [Concomitant]
     Indication: PARKINSON'S DISEASE
     Dates: start: 20060929
  44. VALIUM [Concomitant]
     Indication: ANXIETY
  45. M.V.I. [Concomitant]
     Dates: start: 20050101, end: 20060316
  46. GLUCOSAMINE CHRONDROITIN [Concomitant]
     Indication: OSTEOARTHRITIS
  47. XANAX [Concomitant]
     Indication: PANIC ATTACK
     Dates: start: 20010301
  48. XANAX [Concomitant]
     Indication: ANXIETY

REACTIONS (5)
  - DEPRESSION [None]
  - MAJOR DEPRESSION [None]
  - OBSESSIVE-COMPULSIVE DISORDER [None]
  - PATHOLOGICAL GAMBLING [None]
  - SUICIDAL IDEATION [None]
